FAERS Safety Report 5300530-4 (Version None)
Quarter: 2007Q2

REPORT INFORMATION
  Report Type: 
  Country: None (occurrence: None)
  Receive Date: 20070413
  Receipt Date: 20070413
  Transmission Date: 20071010
  Serious: Yes (Other)
  Sender: FDA-Public Use
  Company Number: None

PATIENT
  Sex: Male

DRUGS (2)
  1. TAXOTERE [Suspect]
     Dosage: 60.00
  2. OXALIPLATIN [Suspect]
     Dosage: 100.00

REACTIONS (3)
  - ABSCESS [None]
  - STAPHYLOCOCCAL INFECTION [None]
  - TUMOUR NECROSIS [None]
